FAERS Safety Report 20291686 (Version 3)
Quarter: 2022Q1

REPORT INFORMATION
  Report Type: Spontaneous
  Country: CN (occurrence: CN)
  Receive Date: 20220104
  Receipt Date: 20220210
  Transmission Date: 20220424
  Serious: Yes (Death)
  Sender: FDA-Public Use
  Company Number: CN-EXELIXIS-CABO-21047814

PATIENT
  Age: 51 Year
  Sex: Female

DRUGS (4)
  1. CABOMETYX [Suspect]
     Active Substance: CABOZANTINIB S-MALATE
     Indication: Non-small cell lung cancer stage IV
     Dosage: 40 MG, QD
  2. GEFITINIB [Suspect]
     Active Substance: GEFITINIB
     Indication: Non-small cell lung cancer stage IV
     Dosage: 250 MG, QOD
  3. PEMBROLIZUMAB [Suspect]
     Active Substance: PEMBROLIZUMAB
     Indication: Non-small cell lung cancer stage IV
     Dosage: 100 MG, Q2WEEKS
  4. BEVACIZUMAB [Suspect]
     Active Substance: BEVACIZUMAB
     Indication: Non-small cell lung cancer stage IV
     Dosage: UNK

REACTIONS (8)
  - Multiple organ dysfunction syndrome [Fatal]
  - General physical health deterioration [Unknown]
  - Cognitive disorder [Unknown]
  - Electroencephalogram abnormal [Unknown]
  - Pleural effusion [Unknown]
  - Liver disorder [Unknown]
  - Metastases to abdominal wall [Unknown]
  - Off label use [Unknown]

NARRATIVE: CASE EVENT DATE: 20170401
